FAERS Safety Report 9382012 (Version 3)
Quarter: 2014Q2

REPORT INFORMATION
  Report Type: Spontaneous
  Country: JP (occurrence: JP)
  Receive Date: 20130703
  Receipt Date: 20140415
  Transmission Date: 20141212
  Serious: Yes (Hospitalization, Other)
  Sender: FDA-Public Use
  Company Number: PHHY2013JP067259

PATIENT
  Sex: Female

DRUGS (4)
  1. CICLOSPORIN [Suspect]
     Indication: INTERSTITIAL LUNG DISEASE
     Dosage: 4 MG/KG, UNK
     Route: 048
  2. TACROLIMUS [Suspect]
     Indication: INTERSTITIAL LUNG DISEASE
  3. CYCLOPHOSPHAMIDE HYDRATE [Suspect]
     Indication: INTERSTITIAL LUNG DISEASE
  4. STEROID PULSE THERAPY [Suspect]
     Indication: INTERSTITIAL LUNG DISEASE

REACTIONS (4)
  - Thrombotic thrombocytopenic purpura [Recovered/Resolved]
  - Renal failure [Recovered/Resolved]
  - Vomiting [Recovering/Resolving]
  - Drug ineffective [Unknown]
